FAERS Safety Report 25951294 (Version 1)
Quarter: 2025Q4

REPORT INFORMATION
  Report Type: Report from Study
  Country: US (occurrence: US)
  Receive Date: 20251023
  Receipt Date: 20251023
  Transmission Date: 20260118
  Serious: Yes (Hospitalization)
  Sender: TAKEDA
  Company Number: US-TAKEDA-2025TUS085795

PATIENT
  Age: 54 Year
  Sex: Male

DRUGS (2)
  1. MARIBAVIR [Suspect]
     Active Substance: MARIBAVIR
     Indication: Liver transplant
     Dosage: 400 MILLIGRAM, BID
     Dates: start: 202509
  2. MARIBAVIR [Suspect]
     Active Substance: MARIBAVIR
     Indication: Renal transplant

REACTIONS (2)
  - Viral load increased [Unknown]
  - Fatigue [Unknown]
